FAERS Safety Report 7907847-5 (Version None)
Quarter: 2011Q4

REPORT INFORMATION
  Report Type: 
  Country: None (occurrence: None)
  Receive Date: 20111110
  Receipt Date: 20111108
  Transmission Date: 20120403
  Serious: Yes (Other)
  Sender: FDA-Public Use
  Company Number: US-PFIZER INC-2011274407

PATIENT
  Sex: Male
  Weight: 77.098 kg

DRUGS (2)
  1. ROBITUSSIN CHILDREN'S COUGH AND COLD LONG ACTING [Suspect]
     Indication: COUGH
  2. ROBITUSSIN CHILDREN'S COUGH AND COLD LONG ACTING [Suspect]
     Indication: NASOPHARYNGITIS
     Dosage: UNK
     Dates: start: 20111001, end: 20111001

REACTIONS (2)
  - HYPERSENSITIVITY [None]
  - ERYTHEMA [None]
